FAERS Safety Report 5606673-X (Version None)
Quarter: 2008Q1

REPORT INFORMATION
  Report Type: 
  Country: None (occurrence: None)
  Receive Date: 20080129
  Receipt Date: 20080123
  Transmission Date: 20080703
  Serious: Yes (Death)
  Sender: FDA-Public Use
  Company Number: DE-ASTRAZENECA-2007PK02501

PATIENT
  Age: 30 Year
  Sex: Male

DRUGS (2)
  1. SEROQUEL [Suspect]
     Dosage: 50 TABLETS OF 300 MG
     Route: 048
  2. CARDIAC THERAPY [Concomitant]

REACTIONS (1)
  - COMPLETED SUICIDE [None]
